FAERS Safety Report 4895634-4 (Version None)
Quarter: 2006Q1

REPORT INFORMATION
  Report Type: 
  Country: None (occurrence: None)
  Receive Date: 20060125
  Receipt Date: 20060112
  Transmission Date: 20060701
  Serious: Yes (Hospitalization)
  Sender: FDA-Public Use
  Company Number: 221069

PATIENT
  Age: 37 Year
  Sex: Male
  Weight: 102 kg

DRUGS (10)
  1. AVASTIN [Suspect]
     Indication: COLORECTAL CANCER
     Dosage: 470 MG, Q2W, INTRAVENOUS
     Route: 042
     Dates: start: 20040714, end: 20050214
  2. IRINOTECAN HCL [Suspect]
     Indication: COLORECTAL CANCER
     Dosage: 380 MG, Q2W, INTRAVENOUS
     Route: 042
     Dates: start: 20040714, end: 20050214
  3. LEUCOVORIN (LEUOCOVORIN CALCIUM) [Suspect]
     Indication: COLORECTAL CANCER
     Dosage: 850 MG, QW2, INTRAVENOUS
     Route: 042
     Dates: start: 20040714, end: 20050214
  4. FLUOROURACIL [Suspect]
     Indication: COLORECTAL CANCER
     Dosage: SEE IMAGE
     Route: 042
     Dates: start: 20040714, end: 20050214
  5. FLUOROURACIL [Suspect]
     Indication: COLORECTAL CANCER
     Dosage: SEE IMAGE
     Route: 042
     Dates: start: 20040714
  6. CELECOXIB OR PLACEBO (CELECOXIB OR PLACEBO) [Suspect]
     Indication: COLORECTAL CANCER
  7. COUMADIN [Concomitant]
  8. GASTROVIEW (DIATRIZOATE MEGLUMINE, DIATRIZOATE SODIUM) [Concomitant]
  9. SODIUM CHLORIDE 0.9% [Concomitant]
  10. PERIDEX (CHLORHEXIDINE GLUCONATE) [Concomitant]

REACTIONS (2)
  - FEBRILE NEUTROPENIA [None]
  - WHITE BLOOD CELL COUNT DECREASED [None]
